FAERS Safety Report 6662973-6 (Version None)
Quarter: 2010Q1

REPORT INFORMATION
  Report Type: 
  Country: None (occurrence: None)
  Receive Date: 20100322
  Receipt Date: 20100309
  Transmission Date: 20100710
  Serious: No
  Sender: FDA-Public Use
  Company Number: 2010-00321

PATIENT
  Age: 51 Year
  Sex: Male
  Weight: 83.9154 kg

DRUGS (10)
  1. ZICAM ALLERGY RELIEF GEL SWABS [Suspect]
     Dosage: QD, ONE DOSE
     Dates: start: 20100303, end: 20100303
  2. AMBIEN [Concomitant]
  3. DEPAKOTE [Concomitant]
  4. SERAQUEL [Concomitant]
  5. TRAZODONE HCL [Concomitant]
  6. ZOCOR [Concomitant]
  7. ADVAIR DISKUS 100/50 [Concomitant]
  8. VENTOLIN [Concomitant]
  9. PROTONIX [Concomitant]
  10. METHOCARBAMOL [Concomitant]

REACTIONS (3)
  - ANOSMIA [None]
  - NASAL DISCOMFORT [None]
  - NASAL OEDEMA [None]
